FAERS Safety Report 7654492-5 (Version None)
Quarter: 2011Q3

REPORT INFORMATION
  Report Type: 
  Country: None (occurrence: None)
  Receive Date: 20110803
  Receipt Date: 20110626
  Transmission Date: 20111222
  Serious: Yes (Other)
  Sender: FDA-Public Use
  Company Number: US-AMGEN-USASP2011039386

PATIENT
  Age: 49 Year
  Sex: Female

DRUGS (3)
  1. ENBREL [Suspect]
     Indication: PSORIATIC ARTHROPATHY
     Dosage: 50 MG, QWK
     Dates: start: 20101030
  2. ENBREL [Suspect]
     Indication: PSORIASIS
  3. ENBREL [Suspect]
     Indication: RHEUMATOID ARTHRITIS

REACTIONS (10)
  - INJECTION SITE WARMTH [None]
  - INJECTION SITE SWELLING [None]
  - CHOLELITHIASIS [None]
  - DECREASED APPETITE [None]
  - ANXIETY [None]
  - INJECTION SITE PRURITUS [None]
  - INJECTION SITE HAEMATOMA [None]
  - INJECTION SITE ERYTHEMA [None]
  - PSORIASIS [None]
  - INJECTION SITE PAIN [None]
